FAERS Safety Report 21236023 (Version 1)
Quarter: 2022Q3

REPORT INFORMATION
  Report Type: Spontaneous
  Country: KR (occurrence: KR)
  Receive Date: 20220822
  Receipt Date: 20220822
  Transmission Date: 20221027
  Serious: Yes (Death, Other)
  Sender: FDA-Public Use
  Company Number: KR-NATCOUSA-2022-NATCOUSA-000075

PATIENT
  Age: 63 Year
  Sex: Male

DRUGS (4)
  1. AZACITIDINE [Suspect]
     Active Substance: AZACITIDINE
     Indication: Myelodysplastic syndrome
  2. BUSULFAN [Suspect]
     Active Substance: BUSULFAN
     Indication: Myelodysplastic syndrome
  3. FLUDARABINE [Suspect]
     Active Substance: FLUDARABINE PHOSPHATE
     Indication: Myelodysplastic syndrome
  4. THYMOCYTE IMMUNE GLOBULIN NOS [Concomitant]
     Active Substance: THYMOCYTE IMMUNE GLOBULIN NOS
     Indication: Myelodysplastic syndrome

REACTIONS (6)
  - Toxic leukoencephalopathy [Fatal]
  - Posterior reversible encephalopathy syndrome [Fatal]
  - Pneumonia klebsiella [Fatal]
  - Disseminated intravascular coagulation [Fatal]
  - Brain injury [Fatal]
  - Septic shock [Fatal]
